FAERS Safety Report 18737318 (Version 3)
Quarter: 2021Q1

REPORT INFORMATION
  Report Type: Spontaneous
  Country: US (occurrence: US)
  Receive Date: 20210113
  Receipt Date: 20210125
  Transmission Date: 20210419
  Serious: No
  Sender: FDA-Public Use
  Company Number: US-PFIZER INC-2021013861

PATIENT
  Age: 52 Year
  Sex: Female
  Weight: 63.05 kg

DRUGS (1)
  1. XELJANZ XR [Suspect]
     Active Substance: TOFACITINIB CITRATE
     Indication: RHEUMATOID ARTHRITIS
     Dosage: UNK

REACTIONS (3)
  - Haemoglobin increased [Unknown]
  - Blood cholesterol abnormal [Unknown]
  - Haematocrit increased [Unknown]

NARRATIVE: CASE EVENT DATE: 202101
